FAERS Safety Report 5679880-8 (Version None)
Quarter: 2008Q1

REPORT INFORMATION
  Report Type: 
  Country: None (occurrence: None)
  Receive Date: 20080321
  Receipt Date: 20080313
  Transmission Date: 20080703
  Serious: Yes (Death)
  Sender: FDA-Public Use
  Company Number: 100#08#2008-01458

PATIENT
  Age: 65 Year
  Sex: Female

DRUGS (3)
  1. METHOTREXATE [Suspect]
     Indication: RHEUMATOID ARTHRITIS
     Dosage: 7.5 MG WEEKLY
  2. ADALIMUMAB (ADALIMUMAB) [Suspect]
     Indication: RHEUMATOID ARTHRITIS
     Dosage: 40 MG EVERY SECOND WEEK SUBCUTANEOUS
     Route: 058
  3. PREDNISONE TAB [Suspect]
     Indication: RHEUMATOID ARTHRITIS
     Dosage: 10 MG

REACTIONS (29)
  - BRAIN COMPRESSION [None]
  - CELLULITIS [None]
  - CEREBRAL THROMBOSIS [None]
  - CHEST X-RAY ABNORMAL [None]
  - CORNEAL OPACITY [None]
  - DEPRESSED LEVEL OF CONSCIOUSNESS [None]
  - ENCEPHALITIS [None]
  - ERYTHEMA [None]
  - EYE PAIN [None]
  - EYELID PTOSIS [None]
  - GENERAL PHYSICAL HEALTH DETERIORATION [None]
  - HAEMOGLOBIN DECREASED [None]
  - HEADACHE [None]
  - HYPOAESTHESIA [None]
  - HYPOTONY OF EYE [None]
  - INFARCTION [None]
  - ISCHAEMIC NEUROPATHY [None]
  - MUCORMYCOSIS [None]
  - MYDRIASIS [None]
  - OCULAR HYPERAEMIA [None]
  - OPHTHALMOPLEGIA [None]
  - PAPILLOEDEMA [None]
  - PNEUMONIA PRIMARY ATYPICAL [None]
  - PSEUDOMONAS INFECTION [None]
  - PUPIL FIXED [None]
  - SEPTIC EMBOLUS [None]
  - SINUSITIS [None]
  - STAPHYLOCOCCAL INFECTION [None]
  - SUBARACHNOID HAEMORRHAGE [None]
